FAERS Safety Report 5732541-9 (Version None)
Quarter: 2008Q2

REPORT INFORMATION
  Report Type: 
  Country: None (occurrence: None)
  Receive Date: 20080507
  Receipt Date: 20080421
  Transmission Date: 20081010
  Serious: Yes (Hospitalization)
  Sender: FDA-Public Use
  Company Number: S08-FRA-01625-01

PATIENT
  Age: 85 Year
  Sex: Female

DRUGS (8)
  1. MEMANTINE HCL [Suspect]
     Dosage: 5 MG BID PO
     Route: 048
     Dates: start: 20080313
  2. TIAPRIDAL (TIAPRIDE) [Suspect]
     Indication: AGGRESSION
     Dates: start: 20080317
  3. TIAPRIDAL (TIAPRIDE) [Suspect]
     Indication: AGITATION
     Dates: start: 20080317
  4. RAMIPRIL [Concomitant]
  5. LASIX [Concomitant]
  6. RISPERDAL [Concomitant]
  7. OXAZEPAM [Concomitant]
  8. AUGMENTIN '125' [Concomitant]

REACTIONS (8)
  - ACUTE PULMONARY OEDEMA [None]
  - AGITATION [None]
  - CREPITATIONS [None]
  - ELECTROCARDIOGRAM ST SEGMENT DEPRESSION [None]
  - HEART RATE INCREASED [None]
  - HYPERTENSIVE CRISIS [None]
  - MYOCARDIAL INFARCTION [None]
  - SINUS TACHYCARDIA [None]
